FAERS Safety Report 8843747 (Version 2)
Quarter: 2012Q4

REPORT INFORMATION
  Report Type: Report from Study
  Country: US (occurrence: US)
  Receive Date: 20121017
  Receipt Date: 20121023
  Transmission Date: 20130627
  Serious: Yes (Hospitalization)
  Sender: FDA-Public Use
  Company Number: US-009507513-1111USA01454

PATIENT
  Age: 55 Year
  Sex: Female
  Weight: 46.9 kg

DRUGS (9)
  1. VORINOSTAT [Suspect]
     Indication: OVARIAN CANCER
     Dosage: UNK
     Route: 048
     Dates: start: 20111012, end: 20111224
  2. PACLITAXEL [Suspect]
     Indication: OVARIAN CANCER
     Dosage: UNK
  3. CARBOPLATIN [Suspect]
     Indication: OVARIAN CANCER
     Dosage: UNK
  4. PROCHLORPERAZINE MALEATE [Concomitant]
     Indication: NAUSEA
     Dosage: 1 DF, q6h
     Route: 048
     Dates: start: 20111012
  5. LIPITOR [Concomitant]
     Indication: BLOOD CHOLESTEROL INCREASED
     Dates: start: 20111109
  6. PLAVIX [Concomitant]
     Indication: CARDIAC DISORDER
     Dates: start: 20111109
  7. METOPROLOL SUCCINATE [Concomitant]
     Indication: HYPERTENSION
     Dates: start: 20111109
  8. ASPIRIN [Concomitant]
     Indication: CARDIAC DISORDER
     Dates: start: 20111109
  9. ZOFRAN [Concomitant]
     Indication: NAUSEA
     Dosage: UNK UNK, PRN

REACTIONS (7)
  - Leukocytosis [Recovered/Resolved]
  - Anastomotic leak [Recovered/Resolved]
  - Abdominal abscess [Recovered/Resolved]
  - Anaemia [Recovered/Resolved]
  - Abdominal pain [Not Recovered/Not Resolved]
  - Abscess [Recovered/Resolved]
  - Anastomotic complication [Recovered/Resolved]
